FAERS Safety Report 14387957 (Version 2)
Quarter: 2018Q2

REPORT INFORMATION
  Report Type: Spontaneous
  Country: US (occurrence: US)
  Receive Date: 20180115
  Receipt Date: 20180620
  Transmission Date: 20180711
  Serious: Yes (Other)
  Sender: FDA-Public Use
  Company Number: US-SA-2017SA201380

PATIENT
  Age: 40 Year
  Sex: Female
  Weight: 122.46 kg

DRUGS (6)
  1. TAXOTERE [Suspect]
     Active Substance: DOCETAXEL
     Dosage: 216 MG,Q3W
     Route: 051
     Dates: start: 20040719, end: 20040719
  2. ADRIAMYCIN [DOXORUBICIN] [Concomitant]
  3. HEPARIN [Concomitant]
     Active Substance: HEPARIN SODIUM
  4. NEUPOGEN [Concomitant]
     Active Substance: FILGRASTIM
  5. TAXOTERE [Suspect]
     Active Substance: DOCETAXEL
     Indication: BREAST CANCER
     Dosage: 216 MG,Q3W
     Route: 051
     Dates: start: 20040520, end: 20040520
  6. NEOSAR [Concomitant]
     Active Substance: CYCLOPHOSPHAMIDE

REACTIONS (2)
  - Psychological trauma [Unknown]
  - Alopecia [Recovering/Resolving]

NARRATIVE: CASE EVENT DATE: 200405
